FAERS Safety Report 23793263 (Version 1)
Quarter: 2024Q2

REPORT INFORMATION
  Report Type: Spontaneous
  Country: CA (occurrence: CA)
  Receive Date: 20240429
  Receipt Date: 20240429
  Transmission Date: 20240716
  Serious: Yes (Other)
  Sender: FDA-Public Use
  Company Number: None

PATIENT
  Age: 16 Year
  Sex: Female

DRUGS (3)
  1. MYCOPHENOLATE MOFETIL [Suspect]
     Active Substance: MYCOPHENOLATE MOFETIL
     Indication: Prophylaxis against graft versus host disease
     Route: 065
  2. CYCLOSPORINE [Suspect]
     Active Substance: CYCLOSPORINE
     Indication: Prophylaxis against graft versus host disease
     Route: 065
  3. METHYLPREDNISOLONE [Suspect]
     Active Substance: METHYLPREDNISOLONE
     Indication: Prophylaxis against graft versus host disease
     Route: 065

REACTIONS (12)
  - Adenovirus infection [Recovered/Resolved]
  - Cytomegalovirus infection reactivation [Recovered/Resolved]
  - Epstein-Barr virus infection [Recovered/Resolved]
  - Escherichia infection [Recovered/Resolved]
  - Gastroenteritis rotavirus [Recovered/Resolved]
  - Herpes virus infection [Recovered/Resolved]
  - Nephropathy toxic [Recovered/Resolved]
  - Pneumonia klebsiella [Recovered/Resolved]
  - Staphylococcal bacteraemia [Recovered/Resolved]
  - Streptococcal infection [Recovered/Resolved]
  - Varicella zoster virus infection [Recovered/Resolved]
  - Viral haemorrhagic cystitis [Recovered/Resolved]
